FAERS Safety Report 9234594 (Version 2)
Quarter: 2013Q2

REPORT INFORMATION
  Report Type: Spontaneous
  Country: US (occurrence: US)
  Receive Date: 20130416
  Receipt Date: 20130508
  Transmission Date: 20140414
  Serious: No
  Sender: FDA-Public Use
  Company Number: US-PFIZER INC-2013116180

PATIENT
  Sex: 0

DRUGS (2)
  1. SOLU-MEDROL [Suspect]
     Indication: PAIN
     Dosage: 1 ML, ONCE
     Route: 030
     Dates: start: 20130410
  2. SOLU-MEDROL [Suspect]
     Indication: INFLAMMATION

REACTIONS (2)
  - Injection site pain [Recovered/Resolved]
  - Drug ineffective [Unknown]
